FAERS Safety Report 4678140-1 (Version None)
Quarter: 2005Q2

REPORT INFORMATION
  Report Type: 
  Country: None (occurrence: None)
  Receive Date: 20050527
  Receipt Date: 20050517
  Transmission Date: 20051028
  Serious: Yes (Death)
  Sender: FDA-Public Use
  Company Number: HQWYE788719MAY05

PATIENT
  Sex: 0

DRUGS (2)
  1. INDERAL LA [Suspect]
     Indication: OESOPHAGEAL VARICES HAEMORRHAGE
     Dosage: INITIAL DOSEOF 80 MG DAILY; DOSE WAS ADJUSTED WEEKLY IN 80-MG INCREMENTS (MAX OF 400 MG)
  2. INDERAL LA [Suspect]
     Indication: PROPHYLAXIS
     Dosage: INITIAL DOSEOF 80 MG DAILY; DOSE WAS ADJUSTED WEEKLY IN 80-MG INCREMENTS (MAX OF 400 MG)

REACTIONS (2)
  - COLITIS ISCHAEMIC [None]
  - HYPOTENSION [None]
